FAERS Safety Report 19040717 (Version 1)
Quarter: 2021Q1

REPORT INFORMATION
  Report Type: Spontaneous
  Country: US (occurrence: US)
  Receive Date: 20210323
  Receipt Date: 20210323
  Transmission Date: 20210420
  Serious: Yes (Hospitalization)
  Sender: FDA-Public Use
  Company Number: US-HIKMA PHARMACEUTICALS USA INC.-US-H14001-21-01415

PATIENT

DRUGS (1)
  1. HEPARIN [Suspect]
     Active Substance: HEPARIN SODIUM
     Indication: HYSTERECTOMY
     Dosage: UNKNOWN

REACTIONS (5)
  - Wound infection [Unknown]
  - Pneumonia [Unknown]
  - Vaginal haematoma [Unknown]
  - Vaginal infection [Unknown]
  - Procedural pain [Unknown]
